FAERS Safety Report 6148499-7 (Version None)
Quarter: 2009Q2

REPORT INFORMATION
  Report Type: 
  Country: None (occurrence: None)
  Receive Date: 20090406
  Receipt Date: 20090406
  Transmission Date: 20091009
  Serious: Yes (Hospitalization)
  Sender: FDA-Public Use
  Company Number: None

PATIENT
  Age: 45 Year
  Sex: Female
  Weight: 84 kg

DRUGS (1)
  1. DEPO-PROVERA [Suspect]
     Indication: CONTRACEPTION
     Dosage: 150MG ONCE IM
     Route: 030
     Dates: start: 20090326, end: 20090326

REACTIONS (6)
  - DIZZINESS [None]
  - DYSPNOEA [None]
  - EYE SWELLING [None]
  - LIP SWELLING [None]
  - OEDEMA PERIPHERAL [None]
  - URTICARIA [None]
